FAERS Safety Report 20258254 (Version 2)
Quarter: 2022Q1

REPORT INFORMATION
  Report Type: Spontaneous
  Country: CA (occurrence: CA)
  Receive Date: 20211230
  Receipt Date: 20220119
  Transmission Date: 20220423
  Serious: Yes (Other)
  Sender: FDA-Public Use
  Company Number: CA-NAPPMUNDI-GBR-2021-0093811

PATIENT
  Sex: Female

DRUGS (15)
  1. MORPHINE SULFATE [Suspect]
     Active Substance: MORPHINE SULFATE
     Indication: Product used for unknown indication
     Dosage: UNK
     Route: 065
  2. CODEINE [Suspect]
     Active Substance: CODEINE
     Indication: Product used for unknown indication
     Dosage: UNK
     Route: 065
  3. CODEINE [Suspect]
     Active Substance: CODEINE
     Dosage: UNK
     Route: 065
  4. ACRIVASTINE [Suspect]
     Active Substance: ACRIVASTINE
     Indication: Product used for unknown indication
     Dosage: UNK
     Route: 065
  5. CLONAZEPAM [Suspect]
     Active Substance: CLONAZEPAM
     Indication: Product used for unknown indication
     Dosage: 4 MG, UNK
     Route: 065
  6. ENTOCORT [Suspect]
     Active Substance: BUDESONIDE
     Indication: Product used for unknown indication
     Dosage: UNK
     Route: 065
  7. INFLIXIMAB [Suspect]
     Active Substance: INFLIXIMAB
     Indication: Crohn^s disease
     Dosage: 300 MG, UNK
     Route: 042
  8. INFLIXIMAB [Suspect]
     Active Substance: INFLIXIMAB
     Dosage: 300 MG, UNK
     Route: 042
  9. INFLIXIMAB [Suspect]
     Active Substance: INFLIXIMAB
     Dosage: 300 MG, UNK
     Route: 042
  10. INFLIXIMAB [Suspect]
     Active Substance: INFLIXIMAB
     Dosage: 300 MG, WEEKLY
     Route: 042
  11. METOCLOPRAMIDE [Suspect]
     Active Substance: METOCLOPRAMIDE
     Indication: Product used for unknown indication
     Dosage: 10 MG, 4 EVERY 1 DAY
     Route: 065
  12. PYRIDOXINE\TRYPTOPHAN [Suspect]
     Active Substance: PYRIDOXINE\TRYPTOPHAN
     Indication: Product used for unknown indication
     Dosage: 2000 MG, DAILY
     Route: 048
  13. SULFASALAZINE [Suspect]
     Active Substance: SULFASALAZINE
     Indication: Product used for unknown indication
     Dosage: UNK
     Route: 065
  14. ZOPICLONE [Suspect]
     Active Substance: ZOPICLONE
     Indication: Product used for unknown indication
     Dosage: 22.5 MG, UNK
     Route: 065
  15. TRYPTOPHAN [Suspect]
     Active Substance: TRYPTOPHAN
     Indication: Product used for unknown indication
     Dosage: 2000 MG, DAILY
     Route: 048

REACTIONS (5)
  - Faeces soft [Unknown]
  - Crohn^s disease [Unknown]
  - Blood pressure systolic decreased [Unknown]
  - Abdominal pain [Unknown]
  - Drug hypersensitivity [Unknown]
